FAERS Safety Report 11809396 (Version 1)
Quarter: 2015Q4

REPORT INFORMATION
  Report Type: Report from Study
  Country: AT (occurrence: DE)
  Receive Date: 20151208
  Receipt Date: 20151208
  Transmission Date: 20160305
  Serious: Yes (Other)
  Sender: FDA-Public Use
  Company Number: AT-009507513-1512DEU004108

PATIENT

DRUGS (2)
  1. GRANOCYTE [Suspect]
     Active Substance: LENOGRASTIM
     Indication: CARDIAC FUNCTION DISTURBANCE POSTOPERATIVE
     Dosage: 10UG/KG/DAY, I.E. 1.28 MIO IU/KG/DAY DIVIDED IN TWO DOSES
     Route: 058
  2. JANUVIA [Suspect]
     Active Substance: SITAGLIPTIN PHOSPHATE
     Indication: CARDIAC FUNCTION DISTURBANCE POSTOPERATIVE
     Dosage: 100 MG EACH DAY FOR 28 DAYS
     Route: 048

REACTIONS (2)
  - Drug ineffective for unapproved indication [Unknown]
  - Stenosis [Unknown]
